FAERS Safety Report 4339088-5 (Version None)
Quarter: 2004Q1

REPORT INFORMATION
  Report Type: 
  Country: None (occurrence: None)
  Receive Date: 20040329
  Receipt Date: 20040203
  Transmission Date: 20041129
  Serious: No
  Sender: FDA-Public Use
  Company Number: USA040258338

PATIENT
  Age: 33 Year
  Sex: Female
  Weight: 68 kg

DRUGS (2)
  1. STRATTERA [Suspect]
     Indication: ATTENTION DEFICIT/HYPERACTIVITY DISORDER
     Dosage: 40 MG/2 DAY
     Dates: start: 20031101
  2. LO/OVRAL [Concomitant]

REACTIONS (1)
  - BREAST TENDERNESS [None]
